FAERS Safety Report 8166703-0 (Version None)
Quarter: 2012Q1

REPORT INFORMATION
  Report Type: 
  Country: None (occurrence: None)
  Receive Date: 20120227
  Receipt Date: 20120214
  Transmission Date: 20120608
  Serious: Yes (Other)
  Sender: FDA-Public Use
  Company Number: AR-ROCHE-1042476

PATIENT
  Sex: Female

DRUGS (1)
  1. LUCENTIS [Suspect]
     Indication: EYE DISORDER
     Dates: start: 20110501

REACTIONS (1)
  - ANGINA UNSTABLE [None]
